FAERS Safety Report 5764989-0 (Version None)
Quarter: 2008Q2

REPORT INFORMATION
  Report Type: 
  Country: None (occurrence: None)
  Receive Date: 20080605
  Receipt Date: 20080526
  Transmission Date: 20081010
  Serious: Yes (Hospitalization, Other)
  Sender: FDA-Public Use
  Company Number: 008-21880-08051471

PATIENT
  Sex: Male

DRUGS (2)
  1. REVLIMID [Suspect]
     Indication: MULTIPLE MYELOMA
     Dosage: 25 MG, DAILY, ORAL;  10 MG, DAILY, ORAL
     Route: 048
  2. DEXAMETHASONE TAB [Concomitant]

REACTIONS (4)
  - ANAEMIA [None]
  - HYPERCALCAEMIA [None]
  - NEUTROPENIA [None]
  - RENAL FAILURE ACUTE [None]
